FAERS Safety Report 7212643-0 (Version None)
Quarter: 2011Q1

REPORT INFORMATION
  Report Type: 
  Country: None (occurrence: None)
  Receive Date: 20110106
  Receipt Date: 20101228
  Transmission Date: 20110831
  Serious: No
  Sender: FDA-Public Use
  Company Number: US-PFIZER INC-2010181938

PATIENT
  Age: 65 Year
  Sex: Male
  Weight: 82.993 kg

DRUGS (2)
  1. ADVIL CONGESTION RELIEF [Suspect]
     Indication: NASAL CONGESTION
  2. ADVIL CONGESTION RELIEF [Suspect]
     Indication: SINUS HEADACHE
     Dosage: 1 CAPSULE EVERY FOUR HOURS
     Route: 048
     Dates: start: 20101214, end: 20101222

REACTIONS (1)
  - DRUG INEFFECTIVE [None]
